FAERS Safety Report 9551612 (Version 1)
Quarter: 2013Q3

REPORT INFORMATION
  Report Type: Spontaneous
  Country: US (occurrence: None)
  Receive Date: 20130923
  Receipt Date: 20130923
  Transmission Date: 20140515
  Serious: No
  Sender: FDA-Public Use
  Company Number: None

PATIENT
  Age: 70 Year
  Sex: Female

DRUGS (2)
  1. PROLIA [Suspect]
     Indication: SENILE OSTEOPOROSIS
     Dosage: INJECT 60 MG SUBCUTANEOUSLY EVERY SIX MONTHS
     Route: 058
     Dates: start: 20130228, end: 20130830
  2. FORTEO [Concomitant]

REACTIONS (2)
  - Headache [None]
  - Heart rate increased [None]
